FAERS Safety Report 18413854 (Version 3)
Quarter: 2024Q1

REPORT INFORMATION
  Report Type: Spontaneous
  Country: DE (occurrence: DE)
  Receive Date: 20201022
  Receipt Date: 20240116
  Transmission Date: 20240409
  Serious: Yes (Other)
  Sender: FDA-Public Use
  Company Number: DE-GLAXOSMITHKLINE-DE2020EME200993

PATIENT

DRUGS (10)
  1. NICOTINE [Interacting]
     Active Substance: NICOTINE
     Indication: Drug withdrawal maintenance therapy
     Dosage: UNK
     Route: 062
  2. OLANZAPINE [Interacting]
     Active Substance: OLANZAPINE
     Indication: Delusional disorder, unspecified type
     Dosage: 15 MG, QD
     Route: 048
  3. OLANZAPINE [Interacting]
     Active Substance: OLANZAPINE
     Dosage: 10 MG, QD
     Route: 048
  4. OLANZAPINE [Interacting]
     Active Substance: OLANZAPINE
     Dosage: 400 MG, QD
     Route: 048
  5. RISPERIDONE [Suspect]
     Active Substance: RISPERIDONE
     Indication: Delusional disorder, unspecified type
     Dosage: 1.5 MG, QD
  6. RISPERIDONE [Suspect]
     Active Substance: RISPERIDONE
     Dosage: 2 MG, QD
  7. AMISULPRIDE [Suspect]
     Active Substance: AMISULPRIDE
     Indication: Delusional disorder, unspecified type
     Dosage: 200 MG, BID
     Route: 048
  8. ATORVASTATIN [Concomitant]
     Active Substance: ATORVASTATIN
     Indication: Product used for unknown indication
     Dosage: 10 MG
     Route: 048
  9. RIVASTIGMINE [Concomitant]
     Active Substance: RIVASTIGMINE
     Indication: Product used for unknown indication
     Dosage: 10 MG, 24 HOURS
     Route: 062
  10. AMPICILLIN AND SULBACTAM [Concomitant]
     Active Substance: AMPICILLIN SODIUM\SULBACTAM SODIUM
     Indication: Pneumonia
     Dosage: UNK

REACTIONS (6)
  - Tobacco interaction [Unknown]
  - Electrocardiogram QT prolonged [Recovering/Resolving]
  - Transaminases increased [Unknown]
  - Overdose [Unknown]
  - Somnolence [Unknown]
  - Hypotonia [Unknown]
